FAERS Safety Report 6125127-8 (Version None)
Quarter: 2009Q1

REPORT INFORMATION
  Report Type: 
  Country: None (occurrence: None)
  Receive Date: 20090316
  Receipt Date: 20090303
  Transmission Date: 20090719
  Serious: Yes (Hospitalization, Other)
  Sender: FDA-Public Use
  Company Number: 230951K08USA

PATIENT
  Age: 60 Year
  Sex: Male
  Weight: 86 kg

DRUGS (5)
  1. REBIF [Suspect]
     Indication: MULTIPLE SCLEROSIS
     Dosage: 44 MCG, 3 IN 1 WEEKS, SUBCUTANEOUS
     Route: 058
     Dates: start: 20080422, end: 20081008
  2. LISINOPRIL [Concomitant]
  3. HYDROCHLOROTHIAZIDE [Concomitant]
  4. SIMVASTATIN [Concomitant]
  5. ACETYLSALICYLIC ACID SRT [Concomitant]

REACTIONS (5)
  - BASAL CELL CARCINOMA [None]
  - CARDIAC DISORDER [None]
  - HEPATIC ENZYME INCREASED [None]
  - MYOCARDIAL INFARCTION [None]
  - SCAB [None]
